FAERS Safety Report 20475086 (Version 1)
Quarter: 2022Q1

REPORT INFORMATION
  Report Type: Spontaneous
  Country: US (occurrence: None)
  Receive Date: 20220214
  Receipt Date: 20220214
  Transmission Date: 20220424
  Serious: Yes (Hospitalization)
  Sender: FDA-Public Use
  Company Number: None

PATIENT
  Sex: Female
  Weight: 53.2 kg

DRUGS (22)
  1. SOTROVIMAB [Suspect]
     Active Substance: SOTROVIMAB
     Indication: COVID-19
     Route: 042
     Dates: start: 20220211, end: 20220212
  2. ACETAMINOPHEN [Concomitant]
     Active Substance: ACETAMINOPHEN
     Dates: start: 20220202
  3. AMOXICILLIN [Concomitant]
     Active Substance: AMOXICILLIN
     Dates: start: 20220211, end: 20220212
  4. ASPIRIN [Concomitant]
     Active Substance: ASPIRIN
     Dates: start: 20220130
  5. nephrocaps (B complex-C-folic acid) [Concomitant]
     Dates: start: 20220128
  6. calcium gluconate in NaCl IVPB [Concomitant]
     Dates: start: 20220212, end: 20220212
  7. CEFTRIAXONE [Concomitant]
     Active Substance: CEFTRIAXONE
     Dates: start: 20220212
  8. CYANOCOBALAMIN [Concomitant]
     Active Substance: CYANOCOBALAMIN
     Dates: start: 20220129
  9. DEXAMETHASONE [Concomitant]
     Active Substance: DEXAMETHASONE
     Dates: start: 20220212
  10. GABAPENTIN [Concomitant]
     Active Substance: GABAPENTIN
     Dates: start: 20220127
  11. OXYCODONE [Concomitant]
     Active Substance: OXYCODONE
     Dates: start: 20220202
  12. MIDODRINE [Concomitant]
     Active Substance: MIDODRINE
     Dates: start: 20220125
  13. MIRTAZAPINE [Concomitant]
     Active Substance: MIRTAZAPINE
     Dates: start: 20220212
  14. OXCARBAZEPINE [Concomitant]
     Active Substance: OXCARBAZEPINE
     Dates: start: 20220128
  15. PANTOPRAZOLE [Concomitant]
     Active Substance: PANTOPRAZOLE
     Dates: start: 20220128
  16. PROPRANOLOL [Concomitant]
     Active Substance: PROPRANOLOL HYDROCHLORIDE
     Dates: start: 20220210
  17. QUETIAPINE [Concomitant]
     Active Substance: QUETIAPINE
     Dates: start: 20220125
  18. SEVELAMER [Concomitant]
     Active Substance: SEVELAMER
     Dates: start: 20220125
  19. SODIUM BICARBONATE [Concomitant]
     Active Substance: SODIUM BICARBONATE
     Dates: start: 20220210
  20. THIAMINE [Concomitant]
     Active Substance: THIAMINE
     Dates: start: 20220128
  21. TOPIRAMATE [Concomitant]
     Active Substance: TOPIRAMATE
     Dates: start: 20220210
  22. WARFARIN [Concomitant]
     Active Substance: WARFARIN

REACTIONS (3)
  - Acute respiratory distress syndrome [None]
  - Acute lung injury [None]
  - Infusion related reaction [None]
